FAERS Safety Report 4430073-1 (Version None)
Quarter: 2004Q3

REPORT INFORMATION
  Report Type: 
  Country: None (occurrence: None)
  Receive Date: 20040816
  Receipt Date: 20040730
  Transmission Date: 20050211
  Serious: No
  Sender: FDA-Public Use
  Company Number: A01200403580

PATIENT
  Age: 80 Year
  Sex: Male

DRUGS (1)
  1. (ALFUZOSIN) - UNKNOWN - UNIT DOSE: UNKNOWN [Suspect]

REACTIONS (3)
  - HEPATITIS ACUTE [None]
  - JAUNDICE [None]
  - PRURITUS [None]
